FAERS Safety Report 15289742 (Version 1)
Quarter: 2018Q3

REPORT INFORMATION
  Report Type: Spontaneous
  Country: US (occurrence: US)
  Receive Date: 20180803
  Receipt Date: 20180803
  Transmission Date: 20181010
  Serious: No
  Sender: FDA-Public Use
  Company Number: None

PATIENT
  Age: 74 Year
  Sex: Female
  Weight: 81 kg

DRUGS (5)
  1. MOXIFLOXACIN. [Suspect]
     Active Substance: MOXIFLOXACIN
     Indication: PREOPERATIVE CARE
     Dates: start: 20170831, end: 20170923
  2. MOXIFLOXACIN. [Suspect]
     Active Substance: MOXIFLOXACIN
     Indication: CATARACT OPERATION
     Dates: start: 20170831, end: 20170923
  3. MULTI?VITAMIN [Concomitant]
     Active Substance: .ALPHA.-TOCOPHEROL ACETATE, DL-\ASCORBIC ACID\CYANOCOBALAMIN\FLUORIDE ION\FOLIC ACID\NIACIN\PYRIDOXINE\RIBOFLAVIN\THIAMINE\VITAMIN A\VITAMIN D
  4. FISH OIL [Concomitant]
     Active Substance: FISH OIL
  5. LAMOTRIGINE. [Concomitant]
     Active Substance: LAMOTRIGINE

REACTIONS (9)
  - Eye swelling [None]
  - Drug dispensing error [None]
  - Eye disorder [None]
  - Product outer packaging issue [None]
  - Eye haemorrhage [None]
  - Cataract operation complication [None]
  - Neuralgia [None]
  - Wrong drug administered [None]
  - Retinal tear [None]

NARRATIVE: CASE EVENT DATE: 20170911
